FAERS Safety Report 12355670 (Version 1)
Quarter: 2016Q2

REPORT INFORMATION
  Report Type: Spontaneous
  Country: US (occurrence: US)
  Receive Date: 20160511
  Receipt Date: 20160511
  Transmission Date: 20160815
  Serious: Yes (Disabling)
  Sender: FDA-Public Use
  Company Number: US-FRI-1000084446

PATIENT
  Age: 66 Year
  Sex: Female

DRUGS (14)
  1. ADVIL [Concomitant]
     Active Substance: IBUPROFEN
  2. ATIVAN [Concomitant]
     Active Substance: LORAZEPAM
  3. HYDROCODONE [Concomitant]
     Active Substance: HYDROCODONE
  4. RELAFEN [Concomitant]
     Active Substance: NABUMETONE
  5. ZOVIRAX [Concomitant]
     Active Substance: ACYCLOVIR
  6. ALDACTONE [Concomitant]
     Active Substance: SPIRONOLACTONE
  7. CYMBALTA [Concomitant]
     Active Substance: DULOXETINE HYDROCHLORIDE
  8. KEFLEX [Concomitant]
     Active Substance: CEPHALEXIN
  9. AUGMENTIN [Concomitant]
     Active Substance: AMOXICILLIN\CLAVULANATE POTASSIUM
  10. CHOLECALCIFEROL [Concomitant]
     Active Substance: CHOLECALCIFEROL
  11. LINZESS [Suspect]
     Active Substance: LINACLOTIDE
     Route: 048
  12. ICAPS [Concomitant]
     Active Substance: MINERALS\VITAMINS
  13. NYSTATIN. [Concomitant]
     Active Substance: NYSTATIN
  14. ZYRTEC [Concomitant]
     Active Substance: CETIRIZINE HYDROCHLORIDE

REACTIONS (5)
  - Viral infection [Unknown]
  - Aphthous ulcer [Unknown]
  - Mouth ulceration [Unknown]
  - Diarrhoea [Unknown]
  - Drug ineffective [Unknown]
